FAERS Safety Report 24418721 (Version 1)
Quarter: 2024Q4

REPORT INFORMATION
  Report Type: Spontaneous
  Country: US (occurrence: US)
  Receive Date: 20241009
  Receipt Date: 20241009
  Transmission Date: 20250115
  Serious: No
  Sender: BAUSCH AND LOMB
  Company Number: US-BAUSCHBL-2024BNL034179

PATIENT
  Age: 75 Year
  Sex: Male

DRUGS (1)
  1. XIIDRA [Suspect]
     Active Substance: LIFITEGRAST
     Indication: Lacrimation increased
     Route: 047
     Dates: start: 20240823, end: 202408

REACTIONS (8)
  - Ocular hyperaemia [Unknown]
  - Adverse drug reaction [Unknown]
  - Eye irritation [Unknown]
  - Ocular discomfort [Unknown]
  - Eye pruritus [Unknown]
  - Eye discharge [Unknown]
  - Product storage error [Unknown]
  - Product delivery mechanism issue [Unknown]

NARRATIVE: CASE EVENT DATE: 20240101
